FAERS Safety Report 19811009 (Version 1)
Quarter: 2021Q3

REPORT INFORMATION
  Report Type: Report from Study
  Country: None (occurrence: US)
  Receive Date: 20210910
  Receipt Date: 20210910
  Transmission Date: 20211014
  Serious: Yes (Other)
  Sender: FDA-Public Use
  Company Number: US-ABBVIE-21K-163-4028967-00

PATIENT
  Age: 73 Year
  Sex: Male

DRUGS (3)
  1. IMBRUVICA [Suspect]
     Active Substance: IBRUTINIB
     Indication: MANTLE CELL LYMPHOMA
     Route: 048
     Dates: start: 20201106
  2. IMBRUVICA [Suspect]
     Active Substance: IBRUTINIB
     Route: 048
  3. IMBRUVICA [Suspect]
     Active Substance: IBRUTINIB
     Route: 048

REACTIONS (10)
  - Inguinal hernia [Not Recovered/Not Resolved]
  - Pneumonitis [Not Recovered/Not Resolved]
  - Neuropathy peripheral [Not Recovered/Not Resolved]
  - Insomnia [Recovered/Resolved]
  - Pollakiuria [Recovered/Resolved]
  - Chronic kidney disease [Not Recovered/Not Resolved]
  - Decreased appetite [Recovered/Resolved]
  - COVID-19 [Not Recovered/Not Resolved]
  - Hypophagia [Recovered/Resolved]
  - Fall [Not Recovered/Not Resolved]

NARRATIVE: CASE EVENT DATE: 202012
